FAERS Safety Report 10203507 (Version 1)
Quarter: 2014Q2

REPORT INFORMATION
  Report Type: Report from Study
  Country: TW (occurrence: TW)
  Receive Date: 20140529
  Receipt Date: 20140529
  Transmission Date: 20141212
  Serious: Yes (Hospitalization)
  Sender: FDA-Public Use
  Company Number: TW-SA-2014SA069397

PATIENT
  Age: 12 Year
  Sex: Male

DRUGS (1)
  1. MYOZYME [Suspect]
     Indication: GLYCOGEN STORAGE DISEASE TYPE II
     Route: 042

REACTIONS (6)
  - Mastoiditis [Unknown]
  - Pneumonia [Unknown]
  - Pyrexia [Unknown]
  - Urinary tract infection [Unknown]
  - Wound infection [Unknown]
  - Otitis media [Unknown]
